FAERS Safety Report 7574790-3 (Version None)
Quarter: 2011Q2

REPORT INFORMATION
  Report Type: 
  Country: None (occurrence: None)
  Receive Date: 20110627
  Receipt Date: 20110608
  Transmission Date: 20111010
  Serious: Yes (Hospitalization, Other)
  Sender: FDA-Public Use
  Company Number: US-BAYER-2011-026802

PATIENT
  Age: 32 Year
  Sex: Female
  Weight: 81.633 kg

DRUGS (8)
  1. IBUPROFEN [Concomitant]
  2. FLUOXETINE HCL [Concomitant]
     Dosage: UNK
     Dates: start: 20090101
  3. YAZ [Suspect]
     Indication: ACNE
  4. METHOCARBAMOL [Concomitant]
     Dosage: UNK
     Dates: start: 20090309
  5. YAZ [Suspect]
     Indication: ORAL CONTRACEPTION
     Dosage: UNK
     Route: 048
     Dates: start: 20070101, end: 20090301
  6. SUDOGEST [Concomitant]
  7. FUROSEMIDE [Concomitant]
  8. ROBAXIN [Concomitant]

REACTIONS (5)
  - PULMONARY HYPERTENSION [None]
  - CHEST PAIN [None]
  - DYSPNOEA [None]
  - PULMONARY EMBOLISM [None]
  - DEEP VEIN THROMBOSIS [None]
